FAERS Safety Report 9747310 (Version 1)
Quarter: 2013Q4

REPORT INFORMATION
  Report Type: Spontaneous
  Country: US (occurrence: US)
  Receive Date: 20131212
  Receipt Date: 20131212
  Transmission Date: 20140711
  Serious: No
  Sender: FDA-Public Use
  Company Number: US-ASTRAZENECA-2013SE88942

PATIENT
  Age: 54 Year
  Sex: Female
  Weight: 75.8 kg

DRUGS (21)
  1. NEXIUM [Suspect]
     Indication: GASTROOESOPHAGEAL REFLUX DISEASE
     Route: 048
     Dates: start: 2004, end: 2013
  2. PRILOSEC [Suspect]
     Indication: GASTROOESOPHAGEAL REFLUX DISEASE
     Route: 048
     Dates: start: 1998, end: 2004
  3. ATENOLOL [Suspect]
     Indication: CARDIOVASCULAR DISORDER
     Route: 048
  4. ZOLOFT [Concomitant]
     Indication: DEPRESSION
     Route: 048
  5. ZOLOFT [Concomitant]
     Indication: ANXIETY
     Route: 048
  6. NORTRIPTYLINE [Concomitant]
     Indication: DEPRESSION
     Route: 048
  7. NORTRIPTYLINE [Concomitant]
     Indication: ANXIETY
     Route: 048
  8. KLONOPIN [Concomitant]
     Indication: DEPRESSION
     Route: 048
  9. KLONOPIN [Concomitant]
     Indication: ANXIETY
     Route: 048
  10. PROCARDIA [Concomitant]
     Indication: CARDIOVASCULAR DISORDER
     Route: 048
  11. IMDUR [Concomitant]
     Indication: ATRIOVENTRICULAR BLOCK
     Route: 048
  12. SPIRONOLACTONE [Concomitant]
     Indication: FLUID RETENTION
     Route: 048
  13. ASPIRIN [Concomitant]
     Indication: CARDIOVASCULAR EVENT PROPHYLAXIS
     Route: 048
  14. VENTOLIN [Concomitant]
     Indication: CHRONIC OBSTRUCTIVE PULMONARY DISEASE
     Dosage: 180MCG Q4H
     Route: 048
  15. ADVAIR [Concomitant]
     Indication: CHRONIC OBSTRUCTIVE PULMONARY DISEASE
     Dosage: 250/50MCG BID
     Route: 048
  16. COLACE [Concomitant]
     Indication: IRRITABLE BOWEL SYNDROME
     Route: 048
  17. MIRALAX [Concomitant]
     Indication: IRRITABLE BOWEL SYNDROME
     Route: 048
  18. FLEXORIL [Concomitant]
     Indication: ARTHRALGIA
     Route: 048
  19. LIPITOR [Concomitant]
     Indication: BLOOD CHOLESTEROL
     Route: 048
  20. FISHOIL [Concomitant]
     Indication: CARDIOVASCULAR EVENT PROPHYLAXIS
     Route: 048
  21. TRAMADOL [Concomitant]
     Indication: PAIN
     Route: 048

REACTIONS (18)
  - Aphagia [Not Recovered/Not Resolved]
  - Throat irritation [Not Recovered/Not Resolved]
  - Erosive oesophagitis [Not Recovered/Not Resolved]
  - Irritable bowel syndrome [Not Recovered/Not Resolved]
  - Hypertension [Not Recovered/Not Resolved]
  - Dysthymic disorder [Not Recovered/Not Resolved]
  - Fatigue [Not Recovered/Not Resolved]
  - Fibromyalgia [Not Recovered/Not Resolved]
  - Pain [Not Recovered/Not Resolved]
  - Blood cholesterol increased [Not Recovered/Not Resolved]
  - Glucose tolerance impaired [Not Recovered/Not Resolved]
  - Coronary artery disease [Unknown]
  - Chronic obstructive pulmonary disease [Unknown]
  - Bronchitis chronic [Unknown]
  - Gout [Unknown]
  - Oedema [Unknown]
  - Blood triglycerides increased [Unknown]
  - Drug dose omission [Not Recovered/Not Resolved]
